FAERS Safety Report 6533625-8 (Version None)
Quarter: 2010Q1

REPORT INFORMATION
  Report Type: 
  Country: None (occurrence: None)
  Receive Date: 20100108
  Receipt Date: 20100108
  Transmission Date: 20100710
  Serious: Yes (Other)
  Sender: FDA-Public Use
  Company Number: None

PATIENT
  Age: 69 Year
  Sex: Male
  Weight: 77.1115 kg

DRUGS (1)
  1. BACLOFEN [Suspect]
     Indication: MUSCLE SPASMS
     Dosage: 10 TO 20 MG 3 TIMES DAILY PO
     Route: 048
     Dates: start: 20100105, end: 20100106

REACTIONS (19)
  - AMNESIA [None]
  - CONDITION AGGRAVATED [None]
  - DECREASED APPETITE [None]
  - DISORIENTATION [None]
  - DRUG INEFFECTIVE [None]
  - GAIT DISTURBANCE [None]
  - HYPOAESTHESIA [None]
  - MUSCLE SPASMS [None]
  - MUSCULAR WEAKNESS [None]
  - NAUSEA [None]
  - PAIN [None]
  - POLLAKIURIA [None]
  - PRODUCT QUALITY ISSUE [None]
  - SENSATION OF HEAVINESS [None]
  - SUDDEN ONSET OF SLEEP [None]
  - THIRST [None]
  - TRANCE [None]
  - TREMOR [None]
  - URINE OUTPUT INCREASED [None]
